FAERS Safety Report 6409058-1 (Version None)
Quarter: 2009Q4

REPORT INFORMATION
  Report Type: 
  Country: None (occurrence: None)
  Receive Date: 20091019
  Receipt Date: 20091019
  Transmission Date: 20100525
  Serious: Yes (Other)
  Sender: FDA-Public Use
  Company Number: None

PATIENT
  Age: 52 Year
  Sex: Female
  Weight: 82.5547 kg

DRUGS (8)
  1. CARBATROL [Suspect]
     Indication: JAW DISORDER
     Dosage: 2 PILLS EACH NIGHT PO
     Route: 048
     Dates: start: 20090929, end: 20091016
  2. CARBATROL [Suspect]
     Indication: ORAL DISORDER
     Dosage: 2 PILLS EACH NIGHT PO
     Route: 048
     Dates: start: 20090929, end: 20091016
  3. CARBATROL [Suspect]
     Indication: PARALYSIS
     Dosage: 2 PILLS EACH NIGHT PO
     Route: 048
     Dates: start: 20090929, end: 20091016
  4. CARBATROL [Suspect]
     Indication: TOOTH INJURY
     Dosage: 2 PILLS EACH NIGHT PO
     Route: 048
     Dates: start: 20090929, end: 20091016
  5. TEGRETOL [Suspect]
     Indication: JAW DISORDER
     Dosage: 3 PILLS DAILY EVERY 8 HRS PO
     Route: 048
     Dates: start: 20090828, end: 20090912
  6. TEGRETOL [Suspect]
     Indication: ORAL DISORDER
     Dosage: 3 PILLS DAILY EVERY 8 HRS PO
     Route: 048
     Dates: start: 20090828, end: 20090912
  7. TEGRETOL [Suspect]
     Indication: PARALYSIS
     Dosage: 3 PILLS DAILY EVERY 8 HRS PO
     Route: 048
     Dates: start: 20090828, end: 20090912
  8. TEGRETOL [Suspect]
     Indication: TOOTH INJURY
     Dosage: 3 PILLS DAILY EVERY 8 HRS PO
     Route: 048
     Dates: start: 20090828, end: 20090912

REACTIONS (4)
  - NAUSEA [None]
  - OEDEMA MOUTH [None]
  - PYREXIA [None]
  - SWELLING FACE [None]
